FAERS Safety Report 15896806 (Version 2)
Quarter: 2019Q1

REPORT INFORMATION
  Report Type: Report from Study
  Country: CA (occurrence: CA)
  Receive Date: 20190131
  Receipt Date: 20190214
  Transmission Date: 20190417
  Serious: Yes (Death)
  Sender: FDA-Public Use
  Company Number: CA-TAIHO ONCOLOGY  INC-EU-2019-00297

PATIENT
  Age: 69 Year
  Sex: Female

DRUGS (2)
  1. LONSURF [Suspect]
     Active Substance: TIPIRACIL HYDROCHLORIDE\TRIFLURIDINE
     Indication: COLORECTAL CANCER METASTATIC
     Dosage: LAST CYCLE UNKNOWN
     Route: 048
     Dates: start: 201805, end: 20181201
  2. LONSURF [Suspect]
     Active Substance: TIPIRACIL HYDROCHLORIDE\TRIFLURIDINE
     Dosage: CYCLE 2 STARTED ON JUNE 2018. CYCLES 3-8 JUL-DEC 2018.
     Route: 048
     Dates: start: 201806, end: 20181201

REACTIONS (2)
  - Malignant neoplasm progression [None]
  - Disease progression [Fatal]

NARRATIVE: CASE EVENT DATE: 20190122
